FAERS Safety Report 8681781 (Version 2)
Quarter: 2012Q4

REPORT INFORMATION
  Report Type: 
  Country: FR (occurrence: FR)
  Receive Date: 20120725
  Receipt Date: 20120928
  Transmission Date: 20130627
  Serious: Yes (Hospitalization)
  Sender: FDA-Public Use
  Company Number: FR-SANOFI-AVENTIS-2012SA050902

PATIENT
  Age: 56 Year
  Sex: Female

DRUGS (11)
  1. LOVENOX [Suspect]
     Indication: THROMBOSIS PROPHYLAXIS
     Route: 058
     Dates: start: 20120606, end: 20120612
  2. KEPPRA [Suspect]
     Indication: EPILEPSY
     Route: 048
     Dates: start: 20120605, end: 20120612
  3. LOXEN [Suspect]
     Indication: HYPERTENSION ARTERIAL
     Route: 048
     Dates: start: 20120606, end: 20120612
  4. PARACETAMOL [Suspect]
     Indication: PAIN
     Route: 048
     Dates: start: 20120606, end: 20120612
  5. PROPOFOL [Concomitant]
     Dates: start: 20120605, end: 20120607
  6. INEXIUM [Concomitant]
     Dates: start: 20120605, end: 20120609
  7. TRAMADOL [Concomitant]
     Dates: start: 20120606, end: 20120609
  8. TAHOR [Concomitant]
     Dates: start: 20120606, end: 20120609
  9. LANSOPRAZOLE [Concomitant]
     Dates: start: 20120607, end: 20120609
  10. DIPRIVAN [Concomitant]
     Dates: start: 20120607, end: 20120609
  11. DEPAKINE CHRONO [Concomitant]
     Indication: EPILEPSY
     Route: 048

REACTIONS (1)
  - Hepatitis [Not Recovered/Not Resolved]
